FAERS Safety Report 8580005-X (Version None)
Quarter: 2012Q3

REPORT INFORMATION
  Report Type: 
  Country: None (occurrence: None)
  Receive Date: 20120731
  Receipt Date: 20120731
  Transmission Date: 20120928
  Serious: Yes (Hospitalization)
  Sender: FDA-Public Use
  Company Number: None

PATIENT
  Weight: 89.8122 kg

DRUGS (10)
  1. REVLIMID [Suspect]
     Indication: CHRONIC LYMPHOCYTIC LEUKAEMIA
     Dosage: 10 MG  ONCE DAILY PO
     Route: 048
     Dates: start: 20120606, end: 20120620
  2. REVLIMID [Suspect]
     Indication: LYMPHOMA
     Dosage: 10 MG  ONCE DAILY PO
     Route: 048
     Dates: start: 20120606, end: 20120620
  3. BACITRACIN [Concomitant]
  4. POTASSIUM CHLORIDE [Concomitant]
  5. WARFARIN SODIUM [Concomitant]
  6. PROCHLORPERAZINE [Concomitant]
  7. FUROSEMIDE [Concomitant]
  8. FRAGMIN [Concomitant]
  9. ONDANSETRON [Concomitant]
  10. LACTULOSE [Concomitant]

REACTIONS (2)
  - CELLULITIS [None]
  - STAPHYLOCOCCAL SEPSIS [None]
